FAERS Safety Report 18564009 (Version 2)
Quarter: 2021Q1

REPORT INFORMATION
  Report Type: Report from Study
  Country: US (occurrence: US)
  Receive Date: 20201201
  Receipt Date: 20210216
  Transmission Date: 20210419
  Serious: Yes (Hospitalization, Other)
  Sender: FDA-Public Use
  Company Number: US-TAKEDA-US201931096

PATIENT
  Sex: Female

DRUGS (2)
  1. HUMAN NORMAL IMMUNOGLOBULIN; LIQUID [Suspect]
     Active Substance: HUMAN IMMUNOGLOBULIN G
     Indication: IMMUNODEFICIENCY COMMON VARIABLE
     Dosage: 20 GRAM, 1X/DAY:QD
     Route: 042
  2. HUMAN NORMAL IMMUNOGLOBULIN; LIQUID [Suspect]
     Active Substance: HUMAN IMMUNOGLOBULIN G
     Indication: PRIMARY IMMUNODEFICIENCY SYNDROME
     Dosage: 20 GRAM, EVERY 21 DAYS
     Route: 042

REACTIONS (8)
  - COVID-19 [Recovering/Resolving]
  - Blood pressure decreased [Unknown]
  - Multiple allergies [Unknown]
  - Stress [Unknown]
  - Cardiac disorder [Unknown]
  - Autoimmune disorder [Unknown]
  - Stiff person syndrome [Unknown]
  - Lung disorder [Unknown]
